FAERS Safety Report 20162354 (Version 1)
Quarter: 2021Q4

REPORT INFORMATION
  Report Type: Spontaneous
  Country: None (occurrence: US)
  Receive Date: 20211208
  Receipt Date: 20211208
  Transmission Date: 20220303
  Serious: No
  Sender: FDA-Public Use
  Company Number: US-Intersect Ent, Inc.-2122817

PATIENT
  Age: 36 Year
  Sex: Female

DRUGS (1)
  1. SINUVA [Suspect]
     Active Substance: MOMETASONE FUROATE
     Indication: Nasal polyps
     Route: 006
     Dates: start: 20210614, end: 202108

REACTIONS (2)
  - Nasal crusting [None]
  - Secretion discharge [None]

NARRATIVE: CASE EVENT DATE: 20210729
